FAERS Safety Report 11891939 (Version 1)
Quarter: 2016Q1

REPORT INFORMATION
  Report Type: Spontaneous
  Country: US (occurrence: None)
  Receive Date: 20160105
  Receipt Date: 20160105
  Transmission Date: 20160526
  Serious: No
  Sender: FDA-Public Use
  Company Number: None

PATIENT
  Age: 59 Year
  Sex: Female
  Weight: 72.58 kg

DRUGS (2)
  1. AMBIEN 10 MG GENERIC [Suspect]
     Active Substance: ZOLPIDEM TARTRATE
     Indication: SLEEP DISORDER
     Route: 048
     Dates: start: 20150901, end: 20150930
  2. ASPRIN [Concomitant]
     Active Substance: ASPIRIN

REACTIONS (1)
  - Somnambulism [None]

NARRATIVE: CASE EVENT DATE: 20150901
